FAERS Safety Report 5952839-9 (Version None)
Quarter: 2008Q4

REPORT INFORMATION
  Report Type: 
  Country: None (occurrence: None)
  Receive Date: 20081114
  Receipt Date: 20081107
  Transmission Date: 20090506
  Serious: Yes (Disabling)
  Sender: FDA-Public Use
  Company Number: US-WYE-H06741308

PATIENT
  Age: 54 Year
  Sex: Male

DRUGS (8)
  1. EFFEXOR XR [Suspect]
     Indication: DEPRESSION
     Route: 048
     Dates: start: 20020101, end: 20081019
  2. EFFEXOR XR [Suspect]
     Route: 048
     Dates: start: 20081020, end: 20081026
  3. EFFEXOR XR [Suspect]
     Route: 048
     Dates: start: 20081027, end: 20081102
  4. EFFEXOR XR [Suspect]
     Dosage: 1/2 OF A 37.5 MG TABLET DAILY
     Route: 048
     Dates: start: 20081103, end: 20081110
  5. CALCIUM [Concomitant]
     Dosage: UNKNOWN
  6. ASCORBIC ACID [Concomitant]
     Dosage: UNKNOWN
  7. BUPROPION HYDROCHLORIDE [Concomitant]
     Indication: DEPRESSION
     Dosage: UNKNOWN
     Route: 048
     Dates: start: 20081020
  8. FISH OIL, HYDROGENATED [Concomitant]
     Dosage: UNKNOWN

REACTIONS (8)
  - DISTURBANCE IN ATTENTION [None]
  - DRUG WITHDRAWAL SYNDROME [None]
  - HEADACHE [None]
  - MENTAL STATUS CHANGES [None]
  - NAUSEA [None]
  - PAIN [None]
  - PARAESTHESIA [None]
  - SOMNOLENCE [None]
